FAERS Safety Report 9985694 (Version 1)
Quarter: 2014Q1

REPORT INFORMATION
  Report Type: Report from Study
  Country: US (occurrence: US)
  Receive Date: 20140307
  Receipt Date: 20140307
  Transmission Date: 20141002
  Serious: No
  Sender: FDA-Public Use
  Company Number: US-ABBVIE-13P-163-1089287-00

PATIENT
  Age: 41 Year
  Sex: Female
  Weight: 108.96 kg

DRUGS (3)
  1. HUMIRA [Suspect]
     Indication: RHEUMATOID ARTHRITIS
     Route: 058
     Dates: start: 2004, end: 201206
  2. LOTREL [Concomitant]
     Indication: PRODUCT USED FOR UNKNOWN INDICATION
  3. PROTONIX [Concomitant]
     Indication: PRODUCT USED FOR UNKNOWN INDICATION

REACTIONS (2)
  - Hypoaesthesia [Recovered/Resolved]
  - Vision blurred [Recovered/Resolved]
